FAERS Safety Report 22602943 (Version 1)
Quarter: 2023Q2

REPORT INFORMATION
  Report Type: Spontaneous
  Country: US (occurrence: US)
  Receive Date: 20230615
  Receipt Date: 20230615
  Transmission Date: 20230722
  Serious: No
  Sender: FDA-Public Use
  Company Number: US-ELI_LILLY_AND_COMPANY-US202306003766

PATIENT
  Sex: Female
  Weight: 37.188 kg

DRUGS (1)
  1. EMGALITY [Suspect]
     Active Substance: GALCANEZUMAB-GNLM
     Dosage: 300 MG, MONTHLY (1/M)
     Route: 065

REACTIONS (3)
  - Incorrect dose administered [Unknown]
  - Animal scratch [Unknown]
  - Overdose [Unknown]
